FAERS Safety Report 7659962-1 (Version None)
Quarter: 2011Q3

REPORT INFORMATION
  Report Type: 
  Country: None (occurrence: None)
  Receive Date: 20110802
  Receipt Date: 20110729
  Transmission Date: 20111222
  Serious: Yes (Death, Hospitalization)
  Sender: FDA-Public Use
  Company Number: 2011SP035645

PATIENT
  Age: 22 Year
  Sex: Male

DRUGS (12)
  1. NITRAZEPAM [Concomitant]
  2. PROTECADIN [Concomitant]
  3. AMOXAPINE [Concomitant]
  4. BETAMAC [Concomitant]
  5. REMERON [Suspect]
     Indication: DEPRESSIVE SYMPTOM
     Dosage: 30 MG;QD;PO
     Route: 048
     Dates: start: 20110331, end: 20110720
  6. U-PAN [Concomitant]
  7. RIKKUNSHI-TO [Concomitant]
  8. JZOLOFT (SERTRALINE HYDROCHLORIDE) [Concomitant]
  9. VEGETAMIN [Concomitant]
  10. SILECE [Concomitant]
  11. LEXOTAN [Concomitant]
  12. HYDROCHLOROTHIAZIDE [Concomitant]

REACTIONS (2)
  - MULTIPLE DRUG OVERDOSE INTENTIONAL [None]
  - COMPLETED SUICIDE [None]
